FAERS Safety Report 23574271 (Version 1)
Quarter: 2024Q1

REPORT INFORMATION
  Report Type: Spontaneous
  Country: US (occurrence: US)
  Receive Date: 20240228
  Receipt Date: 20240228
  Transmission Date: 20240410
  Serious: No
  Sender: FDA-Public Use
  Company Number: US-AMNEAL PHARMACEUTICALS-2023-AMRX-03693

PATIENT
  Age: 64 Year
  Sex: Female

DRUGS (1)
  1. GRISEOFULVIN [Suspect]
     Active Substance: GRISEOFULVIN
     Indication: Skin irritation
     Dosage: UNK, BID
     Route: 065

REACTIONS (4)
  - Skin discolouration [Unknown]
  - Illness [Unknown]
  - Headache [Unknown]
  - Blister [Unknown]
